FAERS Safety Report 14662766 (Version 1)
Quarter: 2018Q1

REPORT INFORMATION
  Report Type: Spontaneous
  Country: US (occurrence: US)
  Receive Date: 20180321
  Receipt Date: 20180321
  Transmission Date: 20180509
  Serious: Yes (Death, Hospitalization, Other)
  Sender: FDA-Public Use
  Company Number: US-ZYDUS-019299

PATIENT
  Age: 80 Year
  Sex: Female

DRUGS (1)
  1. ANASTROZOLE. [Suspect]
     Active Substance: ANASTROZOLE
     Indication: INVASIVE DUCTAL BREAST CARCINOMA
     Route: 065

REACTIONS (8)
  - Abdominal pain [Unknown]
  - Multiple organ dysfunction syndrome [Fatal]
  - Fatigue [Unknown]
  - Hepatic mass [Unknown]
  - Mental status changes [Unknown]
  - Ascites [Unknown]
  - Pseudocirrhosis [Unknown]
  - Acute hepatic failure [Unknown]
